FAERS Safety Report 6785661-4 (Version None)
Quarter: 2010Q2

REPORT INFORMATION
  Report Type: 
  Country: None (occurrence: None)
  Receive Date: 20100623
  Receipt Date: 20100616
  Transmission Date: 20101027
  Serious: Yes (Other)
  Sender: FDA-Public Use
  Company Number: US-JNJFOC-20100605443

PATIENT
  Sex: Female
  Weight: 55.79 kg

DRUGS (3)
  1. ORTHO TRI-CYCLEN [Suspect]
     Indication: CONTRACEPTION
     Route: 048
  2. NAPROXEN SODIUM [Concomitant]
     Indication: HEADACHE
     Route: 048
  3. ZOLMITRIPTAN [Concomitant]
     Indication: HEADACHE
     Route: 048

REACTIONS (4)
  - CHEST PAIN [None]
  - MASS [None]
  - THROMBOPHLEBITIS SUPERFICIAL [None]
  - VARICOSE VEIN [None]
